FAERS Safety Report 8971034 (Version 1)
Quarter: 2012Q4

REPORT INFORMATION
  Report Type: 
  Country: US (occurrence: US)
  Receive Date: 20121218
  Receipt Date: 20121218
  Transmission Date: 20130627
  Serious: Yes (Hospitalization)
  Sender: FDA-Public Use
  Company Number: US-PFIZER INC-2012309828

PATIENT
  Age: 49 Year
  Sex: Male
  Weight: 81.3 kg

DRUGS (3)
  1. CARBOPLATIN [Suspect]
     Indication: NON-SMALL CELL LUNG CANCER STAGE IIIB
     Dosage: UNK, cyclic (6 cycles)
     Dates: end: 20090728
  2. ALIMTA [Suspect]
     Indication: NON-SMALL CELL LUNG CANCER STAGE IIIB
     Dosage: UNK, cyclic (6 cycles)
     Dates: end: 20090728
  3. ALIMTA [Suspect]
     Dosage: UNK, cyclic (14 cycles)
     Dates: end: 20100518

REACTIONS (2)
  - Cardiac tamponade [Unknown]
  - Pleural effusion [Unknown]
